FAERS Safety Report 9565548 (Version 1)
Quarter: 2013Q3

REPORT INFORMATION
  Report Type: Report from Study
  Country: US (occurrence: US)
  Receive Date: 20130930
  Receipt Date: 20130930
  Transmission Date: 20140515
  Serious: Yes (Other)
  Sender: FDA-Public Use
  Company Number: US-ACTELION-A-NJ2013-89176

PATIENT
  Age: 52 Year
  Sex: Male

DRUGS (2)
  1. VELETRI [Suspect]
     Indication: PULMONARY ARTERIAL HYPERTENSION
     Dosage: 47 NG/KG, PER MIN
     Route: 042
  2. COUMADIN [Concomitant]

REACTIONS (2)
  - Lung disorder [Unknown]
  - Transplant evaluation [Unknown]
